FAERS Safety Report 5384356-1 (Version None)
Quarter: 2007Q3

REPORT INFORMATION
  Report Type: 
  Country: None (occurrence: None)
  Receive Date: 20070710
  Receipt Date: 20061205
  Transmission Date: 20080115
  Serious: Yes (Hospitalization)
  Sender: FDA-Public Use
  Company Number: 2006-02432

PATIENT
  Age: 46 Year
  Sex: Male
  Weight: 66.7 kg

DRUGS (18)
  1. VELCADE [Suspect]
     Indication: COLORECTAL CANCER
     Dosage: 10.00 MG, INTRAVENOUS
     Route: 042
     Dates: start: 20060713, end: 20060713
  2. OXALIPLATIN [Suspect]
     Indication: COLORECTAL CANCER
     Dosage: MG
     Dates: start: 20060713
  3. NEULASTA (PEGFILGRASATIM) [Concomitant]
  4. ZOLPIDEM TARTRATE [Concomitant]
  5. DIPHENHYDRAMINE HCL [Concomitant]
  6. COLACE (DOCUSATE SODIUM) [Concomitant]
  7. PROCHLORPERAZINE MALEATE [Concomitant]
  8. BISACODYL (BISACODYL) [Concomitant]
  9. KLOR-CON [Concomitant]
  10. CITALOPRAM HYDROBROMIDE [Concomitant]
  11. PREGABALIN [Concomitant]
  12. MILK OF MAGNESIA TAB [Concomitant]
  13. IBUPROFEN [Concomitant]
  14. MS CONTIN [Concomitant]
  15. MORPHINE SULFATE [Concomitant]
  16. SENNA (SENNA) [Concomitant]
  17. ONDANSETRON HCL [Concomitant]
  18. FLUDROCORTISONE ACETATE [Concomitant]

REACTIONS (3)
  - CHILLS [None]
  - PYREXIA [None]
  - UROSEPSIS [None]
